FAERS Safety Report 9472886 (Version 1)
Quarter: 2013Q3

REPORT INFORMATION
  Report Type: Other
  Country: US (occurrence: US)
  Receive Date: 20130823
  Receipt Date: 20130823
  Transmission Date: 20140515
  Serious: Yes (Hospitalization)
  Sender: FDA-Public Use
  Company Number: US-NAPPMUNDI-DEU-2013-0012165

PATIENT
  Age: 43 Year
  Sex: Female

DRUGS (10)
  1. HYDROMORPHONE [Suspect]
     Indication: NEURALGIA
     Dosage: 16 MG, Q2H
     Route: 048
  2. HYDROMORPHONE [Suspect]
     Indication: PAIN
     Dosage: 8 MG, Q2H
     Route: 048
  3. HYDROMORPHONE [Suspect]
     Dosage: 16 MG, Q3- 4H
     Route: 048
  4. OXYCODONE [Suspect]
     Indication: NEURALGIA
     Dosage: 40 MG, TID
     Route: 048
  5. OXYCODONE [Suspect]
     Indication: PAIN
  6. NORTRIPTYLINE                      /00006502/ [Concomitant]
     Indication: PAIN
     Dosage: 50 MG, NOCTE
     Route: 048
  7. GABAPENTIN [Concomitant]
     Indication: PAIN
     Dosage: 1200 MG, TID
     Route: 048
  8. GABAPENTIN [Concomitant]
     Dosage: UNK
     Route: 048
  9. GABAPENTIN [Concomitant]
     Dosage: 1200 MG, TID
     Route: 048
  10. CARBAMAZEPINE [Concomitant]
     Indication: NEURALGIA
     Dosage: 200 MG, BID
     Route: 048

REACTIONS (5)
  - Hyperaesthesia [Recovered/Resolved]
  - Allodynia [Recovered/Resolved]
  - Formication [Recovered/Resolved]
  - Abnormal dreams [Unknown]
  - Oedema peripheral [Unknown]
